FAERS Safety Report 5078456-3 (Version None)
Quarter: 2006Q3

REPORT INFORMATION
  Report Type: 
  Country: None (occurrence: None)
  Receive Date: 20060811
  Receipt Date: 20060731
  Transmission Date: 20061208
  Serious: Yes (Death)
  Sender: FDA-Public Use
  Company Number: SG-NOVOPROD-255713

PATIENT
  Age: 80 Year
  Sex: Male

DRUGS (4)
  1. HYDROCORTISONE TAB [Concomitant]
     Route: 042
  2. IMMUNE GLOBULIN INTRAVENOUS (HUMAN) [Concomitant]
     Route: 042
  3. NOVOSEVEN [Suspect]
     Indication: ACQUIRED HAEMOPHILIA WITH ANTI FVIII, XI, OR XIII
     Dosage: 70 UG/KG, SINGLE DOSE
  4. NOVOSEVEN [Suspect]
     Dosage: 50 UG/KG, 2 DOSES

REACTIONS (1)
  - RETROPERITONEAL HAEMORRHAGE [None]
